FAERS Safety Report 7057465-9 (Version None)
Quarter: 2010Q4

REPORT INFORMATION
  Report Type: 
  Country: None (occurrence: None)
  Receive Date: 20101021
  Receipt Date: 20101021
  Transmission Date: 20110411
  Serious: Yes (Hospitalization)
  Sender: FDA-Public Use
  Company Number: None

PATIENT
  Age: 59 Year
  Sex: Male
  Weight: 76.2 kg

DRUGS (1)
  1. LISINOPRIL [Suspect]
     Indication: HYPERLIPIDAEMIA
     Dosage: 10 MG BID PO
     Route: 048
     Dates: start: 20091208, end: 20101009

REACTIONS (4)
  - ANGIOEDEMA [None]
  - LIP SWELLING [None]
  - LOCAL SWELLING [None]
  - SWOLLEN TONGUE [None]
